FAERS Safety Report 9955536 (Version 2)
Quarter: 2014Q1

REPORT INFORMATION
  Report Type: Report from Study
  Country: US (occurrence: US)
  Receive Date: 20140304
  Receipt Date: 20140304
  Transmission Date: 20141002
  Serious: No
  Sender: FDA-Public Use
  Company Number: US-ABBVIE-13P-163-1067692-00

PATIENT
  Age: 49 Year
  Sex: Female

DRUGS (15)
  1. HUMIRA [Suspect]
     Indication: PSORIASIS
     Dates: start: 20130131, end: 20130322
  2. SAPHRIS [Concomitant]
     Indication: DEPRESSION
     Dosage: AT BEDTIME
  3. OMEPRAZOLE [Concomitant]
     Indication: GASTROOESOPHAGEAL REFLUX DISEASE
  4. VITAMIN D [Concomitant]
     Indication: PRODUCT USED FOR UNKNOWN INDICATION
     Dosage: DAILY
  5. OXCARBAZEPINE [Concomitant]
     Indication: DEPRESSION
     Dosage: 1 EVERY MORNING, 2 AT BEDTIME
  6. LAMOTRIGINE [Concomitant]
     Indication: DEPRESSION
     Dosage: AT BEDTIME
  7. NALTREXONE [Concomitant]
     Indication: FOOD CRAVING
  8. OVER THE COUNTER CALCIUM + VITAMIN D [Concomitant]
     Indication: MINERAL SUPPLEMENTATION
     Dosage: 500/400MG, TWICE DAILY
  9. CELEBREX [Concomitant]
     Indication: ARTHRALGIA
  10. LORAZEPAM [Concomitant]
     Indication: ANXIETY
  11. SUMATRIPTAN SUCCINATE [Concomitant]
     Indication: MIGRAINE
  12. ARTHRITIS PAIN RELIEF ER [Concomitant]
     Indication: ARTHRALGIA
  13. MINOCYCLINE [Concomitant]
     Indication: EYE INFECTION
  14. FLONASE NASAL SPRAY [Concomitant]
     Indication: HYPERSENSITIVITY
     Dosage: TWICE DAILY
  15. UNKNOWN MEDICATIONS [Concomitant]
     Indication: PRODUCT USED FOR UNKNOWN INDICATION

REACTIONS (2)
  - Migraine [Unknown]
  - Arthralgia [Recovered/Resolved]
